FAERS Safety Report 14033770 (Version 1)
Quarter: 2017Q4

REPORT INFORMATION
  Report Type: Spontaneous
  Country: US (occurrence: None)
  Receive Date: 20171003
  Receipt Date: 20171003
  Transmission Date: 20180321
  Serious: No
  Sender: FDA-Public Use
  Company Number: None

PATIENT
  Age: 59 Year
  Sex: Male
  Weight: 88 kg

DRUGS (1)
  1. LISINOPRIL. [Suspect]
     Active Substance: LISINOPRIL
     Indication: HYPERTENSION
     Dosage: 7.5 MG AM PO
     Route: 048
     Dates: start: 20121127, end: 20170930

REACTIONS (2)
  - Angioedema [None]
  - Sinus congestion [None]

NARRATIVE: CASE EVENT DATE: 20170930
